FAERS Safety Report 22304480 (Version 1)
Quarter: 2023Q2

REPORT INFORMATION
  Report Type: Spontaneous
  Country: ES (occurrence: ES)
  Receive Date: 20230510
  Receipt Date: 20230510
  Transmission Date: 20230721
  Serious: Yes (Other)
  Sender: FDA-Public Use
  Company Number: ES-SA-SAC20230509000094

PATIENT
  Age: 60 Year
  Sex: Female

DRUGS (3)
  1. TOUJEO [Suspect]
     Active Substance: INSULIN GLARGINE
     Indication: Type 1 diabetes mellitus
     Dosage: 3 IU
     Route: 058
     Dates: start: 2023
  2. TOUJEO [Suspect]
     Active Substance: INSULIN GLARGINE
     Dosage: 7 IU
     Route: 058
     Dates: start: 2023
  3. LANTUS [Suspect]
     Active Substance: INSULIN GLARGINE
     Indication: Type 1 diabetes mellitus
     Dosage: 23 IU, QD

REACTIONS (3)
  - Loss of consciousness [Recovered/Resolved]
  - Blood glucose fluctuation [Recovered/Resolved]
  - Intentional product misuse [Unknown]

NARRATIVE: CASE EVENT DATE: 20230101
